FAERS Safety Report 23251171 (Version 2)
Quarter: 2023Q4

REPORT INFORMATION
  Report Type: Report from Study
  Country: US (occurrence: US)
  Receive Date: 20231201
  Receipt Date: 20231206
  Transmission Date: 20240109
  Serious: Yes (Hospitalization, Other)
  Sender: FDA-Public Use
  Company Number: US-VERTEX PHARMACEUTICALS-2023-011874

PATIENT
  Sex: Male

DRUGS (2)
  1. TRIKAFTA [Suspect]
     Active Substance: ELEXACAFTOR\IVACAFTOR\TEZACAFTOR
     Indication: Cystic fibrosis
     Dosage: UNKNOWN DOSE
     Route: 048
     Dates: start: 20230210, end: 2023
  2. TRIKAFTA [Suspect]
     Active Substance: ELEXACAFTOR\IVACAFTOR\TEZACAFTOR
     Dosage: REDUCED, HALF YELLOW PILL AT PM + WHOLE BLUE PILL IN AM
     Route: 048
     Dates: start: 202310

REACTIONS (23)
  - Seizure [Unknown]
  - Bronchial secretion retention [Not Recovered/Not Resolved]
  - Anxiety [Recovering/Resolving]
  - Brain fog [Unknown]
  - Tremor [Recovered/Resolved]
  - Heart rate abnormal [Not Recovered/Not Resolved]
  - Asthenia [Unknown]
  - Post concussion syndrome [Unknown]
  - Dizziness [Unknown]
  - Agitation [Recovering/Resolving]
  - Dysstasia [Unknown]
  - Dysgeusia [Unknown]
  - Sinus disorder [Not Recovered/Not Resolved]
  - Bone density decreased [Unknown]
  - Blood testosterone decreased [Not Recovered/Not Resolved]
  - Somnolence [Not Recovered/Not Resolved]
  - Fall [Recovered/Resolved]
  - Head injury [Unknown]
  - Presyncope [Unknown]
  - Dehydration [Unknown]
  - Feeling cold [Unknown]
  - Chills [Unknown]
  - Nasopharyngitis [Not Recovered/Not Resolved]

NARRATIVE: CASE EVENT DATE: 20230101
